FAERS Safety Report 16017177 (Version 1)
Quarter: 2019Q1

REPORT INFORMATION
  Report Type: Spontaneous
  Country: US (occurrence: US)
  Receive Date: 20190131
  Receipt Date: 20190131
  Transmission Date: 20190418
  Serious: No
  Sender: FDA-Public Use
  Company Number: None

PATIENT
  Age: 59 Year
  Sex: Female
  Weight: 58.06 kg

DRUGS (6)
  1. SINGULAIR [Concomitant]
     Active Substance: MONTELUKAST SODIUM
  2. FISH OIL [Concomitant]
     Active Substance: FISH OIL
  3. PROTONIX [Concomitant]
     Active Substance: PANTOPRAZOLE SODIUM
  4. LATUDA [Suspect]
     Active Substance: LURASIDONE HYDROCHLORIDE
     Indication: BIPOLAR DISORDER
     Dosage: ?          QUANTITY:80 MG MILLIGRAM(S);?
     Route: 048
     Dates: start: 201411, end: 201709
  5. LAMICTAL [Concomitant]
     Active Substance: LAMOTRIGINE
  6. CYMBALTA [Concomitant]
     Active Substance: DULOXETINE HYDROCHLORIDE

REACTIONS (9)
  - Anxiety [None]
  - Panic attack [None]
  - Drug ineffective [None]
  - Head titubation [None]
  - Tremor [None]
  - Therapy change [None]
  - Dyskinesia [None]
  - Malaise [None]
  - Tardive dyskinesia [None]

NARRATIVE: CASE EVENT DATE: 201709
